FAERS Safety Report 6227819-9 (Version None)
Quarter: 2009Q2

REPORT INFORMATION
  Report Type: 
  Country: None (occurrence: None)
  Receive Date: 20090612
  Receipt Date: 20090603
  Transmission Date: 20091009
  Serious: Yes (Life-Threatening, Hospitalization)
  Sender: FDA-Public Use
  Company Number: A0789930A

PATIENT
  Age: 12 Year
  Sex: Female
  Weight: 63.1 kg

DRUGS (4)
  1. WELLBUTRIN [Suspect]
     Indication: INTENTIONAL OVERDOSE
     Route: 048
     Dates: start: 20090122, end: 20090122
  2. EXTRA STRENGTH TYLENOL [Suspect]
     Indication: INTENTIONAL OVERDOSE
     Dosage: 10000MG SINGLE DOSE
     Route: 048
     Dates: start: 20090122, end: 20090122
  3. PREVACID [Suspect]
     Dates: start: 20090122, end: 20090122
  4. CELEXA [Suspect]
     Dates: start: 20090122, end: 20090122

REACTIONS (1)
  - INTENTIONAL OVERDOSE [None]
